FAERS Safety Report 20970454 (Version 1)
Quarter: 2022Q2

REPORT INFORMATION
  Report Type: Spontaneous
  Country: US (occurrence: US)
  Receive Date: 20220616
  Receipt Date: 20220616
  Transmission Date: 20220720
  Serious: No
  Sender: FDA-Public Use
  Company Number: US-SA-SAC20220606001306

PATIENT
  Age: 61 Year
  Sex: Male

DRUGS (1)
  1. DUPIXENT [Suspect]
     Active Substance: DUPILUMAB
     Indication: Dermatitis atopic
     Dosage: 300 MG, QOW
     Route: 058
     Dates: start: 202004

REACTIONS (6)
  - Cervical radiculopathy [Unknown]
  - Hypoaesthesia [Unknown]
  - Nasal discomfort [Unknown]
  - Skin haemorrhage [Unknown]
  - Limb discomfort [Unknown]
  - Rash [Unknown]

NARRATIVE: CASE EVENT DATE: 20220101
